FAERS Safety Report 4666985-3 (Version None)
Quarter: 2005Q2

REPORT INFORMATION
  Report Type: 
  Country: None (occurrence: None)
  Receive Date: 20050518
  Receipt Date: 20050311
  Transmission Date: 20051028
  Serious: Yes (Other)
  Sender: FDA-Public Use
  Company Number: 2005044679

PATIENT
  Age: 43 Year
  Sex: Female
  Weight: 81.6475 kg

DRUGS (6)
  1. DEPO-PROVERA [Suspect]
     Indication: ENDOMETRIOSIS
     Dosage: 150 MG, TRIMESTRAL
     Dates: start: 20000101
  2. BENADRYL [Concomitant]
  3. STEROID ANTIBACTERIALS (STEROID ANTIBACTERIALS) [Concomitant]
  4. SALBUTAMOL (SALBUTAMOL) [Concomitant]
  5. VALSARTAN [Concomitant]
  6. DILTIAZEM HYDROCHLORIDE [Concomitant]

REACTIONS (7)
  - BLOOD PRESSURE INCREASED [None]
  - CHEST DISCOMFORT [None]
  - DIABETES MELLITUS [None]
  - DRUG INEFFECTIVE [None]
  - DYSPNOEA [None]
  - URTICARIA GENERALISED [None]
  - WHEEZING [None]
